FAERS Safety Report 6329137-7 (Version None)
Quarter: 2009Q3

REPORT INFORMATION
  Report Type: 
  Country: None (occurrence: None)
  Receive Date: 20090825
  Receipt Date: 20090825
  Transmission Date: 20100115
  Serious: Yes (Hospitalization)
  Sender: FDA-Public Use
  Company Number: None

PATIENT
  Sex: Male
  Weight: 58 kg

DRUGS (2)
  1. PREDNISONE TAB [Suspect]
     Dosage: 700 MG
  2. CYCLOPHOSPHAMIDE [Suspect]
     Dosage: 1660 MG

REACTIONS (1)
  - HYPERGLYCAEMIA [None]
